FAERS Safety Report 7249555-2 (Version None)
Quarter: 2011Q1

REPORT INFORMATION
  Report Type: 
  Country: None (occurrence: None)
  Receive Date: 20110128
  Receipt Date: 20101227
  Transmission Date: 20110831
  Serious: Yes (Hospitalization)
  Sender: FDA-Public Use
  Company Number: DE-BAYER-2010-005705

PATIENT
  Sex: Female
  Weight: 58 kg

DRUGS (1)
  1. MIRENA [Suspect]
     Indication: CONTRACEPTION
     Dosage: UNK
     Dates: start: 20101108

REACTIONS (6)
  - FALL [None]
  - VESTIBULAR NEURONITIS [None]
  - NAUSEA [None]
  - CARDIOVASCULAR DISORDER [None]
  - VERTIGO [None]
  - VOMITING [None]
